FAERS Safety Report 19069726 (Version 7)
Quarter: 2022Q1

REPORT INFORMATION
  Report Type: Report from Study
  Country: US (occurrence: US)
  Receive Date: 20210329
  Receipt Date: 20220302
  Transmission Date: 20220423
  Serious: No
  Sender: FDA-Public Use
  Company Number: NVSC2021US071320

PATIENT
  Age: 70 Year
  Sex: Male

DRUGS (1)
  1. ENTRESTO [Suspect]
     Active Substance: SACUBITRIL\VALSARTAN
     Indication: Cardiac failure chronic
     Dosage: 1 DF (97/103) MG
     Route: 065

REACTIONS (8)
  - Fatigue [Unknown]
  - Dyspnoea [Unknown]
  - Cardiac disorder [Recovering/Resolving]
  - Dehydration [Unknown]
  - Hypotension [Unknown]
  - Dizziness postural [Unknown]
  - Ill-defined disorder [Unknown]
  - Dizziness [Unknown]
